FAERS Safety Report 9777564 (Version 2)
Quarter: 2014Q1

REPORT INFORMATION
  Report Type: Spontaneous
  Country: IL (occurrence: IL)
  Receive Date: 20131222
  Receipt Date: 20140115
  Transmission Date: 20141002
  Serious: Yes (Other)
  Sender: FDA-Public Use
  Company Number: IL-TEVA-452183ISR

PATIENT
  Age: 48 Year
  Sex: 0

DRUGS (1)
  1. TEVAGRASTIM [Suspect]
     Route: 042

REACTIONS (2)
  - Bone pain [Recovered/Resolved]
  - Insomnia [Recovered/Resolved]
